FAERS Safety Report 7814475-9 (Version None)
Quarter: 2011Q4

REPORT INFORMATION
  Report Type: 
  Country: None (occurrence: None)
  Receive Date: 20111014
  Receipt Date: 20111011
  Transmission Date: 20120403
  Serious: Yes (Life-Threatening, Hospitalization, Other)
  Sender: FDA-Public Use
  Company Number: PHHY2011NL89888

PATIENT
  Sex: Male

DRUGS (6)
  1. CLOZAPINE [Suspect]
     Indication: SCHIZOAFFECTIVE DISORDER
     Dosage: 300 MG, PER TIME
     Dates: end: 20110916
  2. CLONAZEPAM [Concomitant]
     Dosage: 0.5 MG, DAILY
  3. RISPERDAL [Concomitant]
     Dosage: 37.5 MG, ONCE PER TWO WEEKS
     Dates: start: 20110901
  4. PAROXETINE HCL [Concomitant]
     Dosage: 30 MG, BID
  5. FOLIC ACID [Concomitant]
     Dosage: 1 MG, DAILY
  6. CAMCOLIT [Concomitant]
     Dosage: 1000 MG, PER TIME

REACTIONS (5)
  - ILEUS PARALYTIC [None]
  - GASTROENTERITIS [None]
  - GASTROENTERITIS VIRAL [None]
  - DEHYDRATION [None]
  - ANTIPSYCHOTIC DRUG LEVEL ABOVE THERAPEUTIC [None]
